FAERS Safety Report 8027590 (Version 4)
Quarter: 2012Q4

REPORT INFORMATION
  Report Type: 
  Country: US (occurrence: US)
  Receive Date: 20110711
  Receipt Date: 20121219
  Transmission Date: 20130627
  Serious: Yes (Hospitalization)
  Sender: FDA-Public Use
  Company Number: US-BAYER-2011-058767

PATIENT
  Age: 27 Year
  Sex: Female
  Weight: 61 kg

DRUGS (2)
  1. YAZ [Suspect]
     Indication: ORAL CONTRACEPTION
     Dosage: UNK
     Dates: start: 20080917, end: 20090715
  2. MULTIVITAMINS [Concomitant]
     Route: 048

REACTIONS (10)
  - Pulmonary embolism [None]
  - Deep vein thrombosis [None]
  - Pelvic venous thrombosis [None]
  - Dyspnoea [None]
  - Musculoskeletal stiffness [None]
  - Back pain [None]
  - Oedema peripheral [None]
  - Pain in extremity [None]
  - Emotional distress [None]
  - Anxiety [None]
